FAERS Safety Report 14321036 (Version 1)
Quarter: 2017Q4

REPORT INFORMATION
  Report Type: Spontaneous
  Country: US (occurrence: US)
  Receive Date: 20171223
  Receipt Date: 20171223
  Transmission Date: 20180321
  Serious: No
  Sender: FDA-Public Use
  Company Number: US-SHIRE-US-002634

PATIENT
  Age: 48 Year
  Sex: Female
  Weight: 98 kg

DRUGS (14)
  1. BLACK COHOSH [Concomitant]
     Active Substance: BLACK COHOSH
     Indication: PHYTOTHERAPY
  2. OMPEOPRAZOLE [Concomitant]
     Indication: PRODUCT USED FOR UNKNOWN INDICATION
     Dates: start: 1992
  3. HCTZ [Concomitant]
     Active Substance: HYDROCHLOROTHIAZIDE
     Indication: HYPOCALCAEMIA
     Dosage: 12.5 MG PRN SEVERE HYPOCALCEMIA
     Dates: start: 1992
  4. VOLTAREN [Concomitant]
     Active Substance: DICLOFENAC SODIUM
     Indication: PRODUCT USED FOR UNKNOWN INDICATION
     Dates: start: 1992
  5. POTASSIUM [Concomitant]
     Active Substance: POTASSIUM
     Indication: MINERAL SUPPLEMENTATION
     Dosage: DF
     Dates: start: 1992
  6. CALCIUM CHEWABLES [Concomitant]
     Indication: HYPOCALCAEMIA
     Dates: start: 20150811
  7. BLACK COHOSH [Concomitant]
     Active Substance: BLACK COHOSH
     Indication: PHYTOTHERAPY
  8. NATPARA (PARATHYROID HORMONE) [Suspect]
     Active Substance: PARATHYROID HORMONE
     Indication: HYPOPARATHYROIDISM
     Dosage: 50 ?G, 1X/DAY:QD
     Route: 058
     Dates: start: 20150811
  9. ARMOUR THYROID [Concomitant]
     Active Substance: THYROID, PORCINE
     Indication: HYPOTHYROIDISM
     Dates: start: 1992
  10. PHENTERMINE. [Concomitant]
     Active Substance: PHENTERMINE
     Indication: PRODUCT USED FOR UNKNOWN INDICATION
     Dates: start: 201508
  11. ALLOPURINOL. [Concomitant]
     Active Substance: ALLOPURINOL
     Indication: RENAL DISORDER
     Dates: start: 1992
  12. ROCALTROL [Concomitant]
     Active Substance: CALCITRIOL
     Indication: HYPOCALCAEMIA
     Dates: start: 1992, end: 20150811
  13. CALCIUM CHEWABLES [Concomitant]
     Dates: start: 1992, end: 20150811
  14. ROCALTROL [Concomitant]
     Active Substance: CALCITRIOL
     Dates: start: 20150811, end: 201509

REACTIONS (4)
  - Paraesthesia [Not Recovered/Not Resolved]
  - Muscle spasms [Not Recovered/Not Resolved]
  - Incorrect dose administered by device [Unknown]
  - Product quality issue [Unknown]

NARRATIVE: CASE EVENT DATE: 20151006
